FAERS Safety Report 6647555-4 (Version None)
Quarter: 2010Q1

REPORT INFORMATION
  Report Type: 
  Country: None (occurrence: None)
  Receive Date: 20100323
  Receipt Date: 20100323
  Transmission Date: 20100710
  Serious: No
  Sender: FDA-Public Use
  Company Number: None

PATIENT
  Age: 73 Year
  Sex: Male
  Weight: 97.5 kg

DRUGS (1)
  1. PRASUGREL [Suspect]
     Indication: CORONARY ARTERIAL STENT INSERTION
     Dosage: 60 MG ONCE PO
     Route: 048
     Dates: start: 20100321, end: 20100322

REACTIONS (1)
  - HYPERTENSION [None]
